FAERS Safety Report 12214468 (Version 1)
Quarter: 2016Q1

REPORT INFORMATION
  Report Type: Spontaneous
  Country: US (occurrence: US)
  Receive Date: 20160328
  Receipt Date: 20160328
  Transmission Date: 20160526
  Serious: No
  Sender: FDA-Public Use
  Company Number: US-WARNER CHILCOTT, LLC-1049792

PATIENT
  Age: 65 Year
  Sex: Female

DRUGS (3)
  1. ESTRACE [Suspect]
     Active Substance: ESTRADIOL
     Route: 067
  2. ESTRACE [Suspect]
     Active Substance: ESTRADIOL
     Route: 067
     Dates: start: 201509, end: 201509
  3. ESTRACE [Suspect]
     Active Substance: ESTRADIOL
     Indication: VULVOVAGINAL DRYNESS
     Route: 067
     Dates: start: 2013

REACTIONS (5)
  - Condition aggravated [Recovered/Resolved]
  - Vulvovaginal erythema [Recovering/Resolving]
  - Vulvovaginal burning sensation [Recovered/Resolved]
  - Vulvovaginal dryness [Recovered/Resolved]
  - Vulvovaginal pain [Recovering/Resolving]

NARRATIVE: CASE EVENT DATE: 201506
